FAERS Safety Report 4445282-5 (Version None)
Quarter: 2004Q3

REPORT INFORMATION
  Report Type: 
  Country: None (occurrence: None)
  Receive Date: 20040907
  Receipt Date: 20040823
  Transmission Date: 20050211
  Serious: Yes (Death, Hospitalization)
  Sender: FDA-Public Use
  Company Number: 04P-144-0271600-00

PATIENT
  Age: 37 Year
  Sex: Female

DRUGS (3)
  1. KALETRA [Suspect]
     Indication: HIV INFECTION
     Dosage: 3 CAPSULE, 2 IN 1 D, PER ORAL
     Route: 048
     Dates: start: 20020916
  2. ABACAVIR [Concomitant]
  3. STAVUDINE [Concomitant]

REACTIONS (3)
  - BURKITT'S LYMPHOMA [None]
  - PANCYTOPENIA [None]
  - SEPSIS [None]
